FAERS Safety Report 25596347 (Version 1)
Quarter: 2025Q3

REPORT INFORMATION
  Report Type: Spontaneous
  Country: US (occurrence: US)
  Receive Date: 20250723
  Receipt Date: 20250723
  Transmission Date: 20251020
  Serious: No
  Sender: ALKERMES
  Company Number: US-ALKERMES INC.-ALK-2025-001868

PATIENT
  Sex: Male
  Weight: 79.365 kg

DRUGS (2)
  1. VIVITROL [Suspect]
     Active Substance: NALTREXONE
     Indication: Drug dependence
     Route: 030
     Dates: start: 20250322
  2. ZYPREXA [Suspect]
     Active Substance: OLANZAPINE
     Indication: Sleep disorder
     Route: 065

REACTIONS (2)
  - Inhibitory drug interaction [Unknown]
  - Off label use [Unknown]

NARRATIVE: CASE EVENT DATE: 20250101
